FAERS Safety Report 20557463 (Version 1)
Quarter: 2022Q1

REPORT INFORMATION
  Report Type: Spontaneous
  Country: PT (occurrence: None)
  Receive Date: 20220307
  Receipt Date: 20220307
  Transmission Date: 20220423
  Serious: Yes (Other)
  Sender: FDA-Public Use
  Company Number: PT-MICRO LABS LIMITED-ML2022-00707

PATIENT
  Age: 22 Year
  Sex: Male

DRUGS (17)
  1. LEVETIRACETAM [Suspect]
     Active Substance: LEVETIRACETAM
     Indication: Severe myoclonic epilepsy of infancy
  2. CLOBAZAM [Suspect]
     Active Substance: CLOBAZAM
     Indication: Severe myoclonic epilepsy of infancy
  3. CLOBAZAM [Suspect]
     Active Substance: CLOBAZAM
  4. CLOBAZAM [Suspect]
     Active Substance: CLOBAZAM
  5. VALPROIC ACID [Suspect]
     Active Substance: VALPROIC ACID
     Indication: Severe myoclonic epilepsy of infancy
  6. VALPROIC ACID [Suspect]
     Active Substance: VALPROIC ACID
  7. VALPROIC ACID [Suspect]
     Active Substance: VALPROIC ACID
  8. STIRIPENTOL [Suspect]
     Active Substance: STIRIPENTOL
     Indication: Severe myoclonic epilepsy of infancy
  9. RUFINAMIDE [Suspect]
     Active Substance: RUFINAMIDE
     Indication: Severe myoclonic epilepsy of infancy
  10. FELBAMATE [Suspect]
     Active Substance: FELBAMATE
     Indication: Severe myoclonic epilepsy of infancy
  11. ZONISAMIDE [Suspect]
     Active Substance: ZONISAMIDE
     Indication: Severe myoclonic epilepsy of infancy
  12. PERAMPANEL [Suspect]
     Active Substance: PERAMPANEL
     Indication: Severe myoclonic epilepsy of infancy
  13. TOPIRAMATE [Suspect]
     Active Substance: TOPIRAMATE
     Indication: Severe myoclonic epilepsy of infancy
  14. PHENOBARBITAL [Suspect]
     Active Substance: PHENOBARBITAL
     Indication: Severe myoclonic epilepsy of infancy
  15. ETHOSUXIMIDE [Suspect]
     Active Substance: ETHOSUXIMIDE
     Indication: Severe myoclonic epilepsy of infancy
  16. ESLICARBAZEPINE ACETATE [Suspect]
     Active Substance: ESLICARBAZEPINE ACETATE
     Indication: Severe myoclonic epilepsy of infancy
  17. ESLICARBAZEPINE ACETATE [Suspect]
     Active Substance: ESLICARBAZEPINE ACETATE

REACTIONS (2)
  - Epilepsy [Recovered/Resolved]
  - Hyperammonaemia [Unknown]
